FAERS Safety Report 5248655-6 (Version None)
Quarter: 2007Q1

REPORT INFORMATION
  Report Type: 
  Country: None (occurrence: None)
  Receive Date: 20070226
  Receipt Date: 20070226
  Transmission Date: 20070707
  Serious: Yes (Disabling, Other)
  Sender: FDA-Public Use
  Company Number: None

PATIENT
  Sex: Male
  Weight: 22.6799 kg

DRUGS (1)
  1. STRATTERA [Suspect]
     Indication: ATTENTION DEFICIT/HYPERACTIVITY DISORDER
     Dosage: 18 MG TWICE DAILY PO
     Route: 048
     Dates: start: 20020201, end: 20070220

REACTIONS (4)
  - AGITATION [None]
  - DYSURIA [None]
  - FEELINGS OF WORTHLESSNESS [None]
  - HALLUCINATION, AUDITORY [None]
